FAERS Safety Report 14247727 (Version 1)
Quarter: 2017Q4

REPORT INFORMATION
  Report Type: Spontaneous
  Country: FR (occurrence: FR)
  Receive Date: 20171204
  Receipt Date: 20171204
  Transmission Date: 20180321
  Serious: Yes (Hospitalization, Other)
  Sender: FDA-Public Use
  Company Number: FR-ELI_LILLY_AND_COMPANY-FR201711007957

PATIENT
  Age: 59 Year
  Sex: Female

DRUGS (6)
  1. ESBERIVEN FORT [Concomitant]
     Active Substance: MELILOTUS OFFICINALIS TOP\RUTIN
     Dosage: UNK, UNKNOWN
     Route: 048
     Dates: start: 201509
  2. ZYPREXA [Suspect]
     Active Substance: OLANZAPINE
     Indication: MAJOR DEPRESSION
     Dosage: 5 MG, UNKNOWN
     Route: 048
     Dates: start: 201508, end: 201510
  3. FENOFIBRATE. [Concomitant]
     Active Substance: FENOFIBRATE
     Dosage: UNK, UNKNOWN
     Route: 048
  4. VERATRAN [Concomitant]
     Active Substance: CLOTIAZEPAM
     Dosage: UNK UNK, UNKNOWN
     Route: 048
  5. LYSANXIA [Concomitant]
     Active Substance: PRAZEPAM
     Dosage: 10 MG, UNKNOWN
     Route: 048
  6. TRANXENE [Concomitant]
     Active Substance: CLORAZEPATE DIPOTASSIUM
     Dosage: 5 MG, UNKNOWN
     Route: 048

REACTIONS (4)
  - Pulmonary arterial hypertension [Unknown]
  - Pulmonary embolism [Recovered/Resolved with Sequelae]
  - Off label use [Unknown]
  - Deep vein thrombosis [Recovered/Resolved]

NARRATIVE: CASE EVENT DATE: 201508
